FAERS Safety Report 5647472-2 (Version None)
Quarter: 2008Q1

REPORT INFORMATION
  Report Type: 
  Country: None (occurrence: None)
  Receive Date: 20080303
  Receipt Date: 20080221
  Transmission Date: 20080703
  Serious: Yes (Other)
  Sender: FDA-Public Use
  Company Number: US-BAYER-200714582BWH

PATIENT
  Sex: Female

DRUGS (2)
  1. AVELOX [Suspect]
     Indication: GINGIVAL INFECTION
     Dosage: TOTAL DAILY DOSE: 400 MG  UNIT DOSE: 400 MG
     Route: 048
  2. BUG SPRAY [Concomitant]

REACTIONS (6)
  - ANAPHYLACTIC REACTION [None]
  - FACIAL PAIN [None]
  - GROIN PAIN [None]
  - HYPOTENSION [None]
  - PAIN IN EXTREMITY [None]
  - SYNCOPE [None]
